FAERS Safety Report 7994455-3 (Version None)
Quarter: 2011Q4

REPORT INFORMATION
  Report Type: 
  Country: None (occurrence: None)
  Receive Date: 20111220
  Receipt Date: 20111123
  Transmission Date: 20120403
  Serious: No
  Sender: FDA-Public Use
  Company Number: US-GLAXOSMITHKLINE-A0954750A

PATIENT
  Age: 57 Year
  Sex: Female

DRUGS (4)
  1. PRAVASTATIN [Concomitant]
  2. LISINOPRIL [Concomitant]
  3. KLOR-CON [Concomitant]
  4. LAMICTAL [Suspect]
     Indication: CONVULSION
     Dosage: 25MG PER DAY
     Route: 048
     Dates: start: 20111117, end: 20111123

REACTIONS (4)
  - TINNITUS [None]
  - MUSCLE SPASMS [None]
  - PARAESTHESIA [None]
  - HYPERHIDROSIS [None]
